FAERS Safety Report 18716950 (Version 1)
Quarter: 2021Q1

REPORT INFORMATION
  Report Type: Spontaneous
  Country: CN (occurrence: CN)
  Receive Date: 20210108
  Receipt Date: 20210108
  Transmission Date: 20210419
  Serious: Yes (Hospitalization)
  Sender: FDA-Public Use
  Company Number: CN-ASTRAZENECA-2021A001310

PATIENT
  Age: 10004 Day
  Sex: Male
  Weight: 46 kg

DRUGS (2)
  1. SEROQUEL [Suspect]
     Active Substance: QUETIAPINE FUMARATE
     Indication: BIPOLAR I DISORDER
     Route: 048
     Dates: start: 20201201, end: 20201217
  2. SOLIAN [Suspect]
     Active Substance: AMISULPRIDE
     Indication: BIPOLAR I DISORDER
     Route: 048
     Dates: start: 20201201, end: 20201203

REACTIONS (2)
  - Condition aggravated [Unknown]
  - Hepatic function abnormal [Recovering/Resolving]

NARRATIVE: CASE EVENT DATE: 20201223
